FAERS Safety Report 4900555-4 (Version None)
Quarter: 2006Q1

REPORT INFORMATION
  Report Type: 
  Country: None (occurrence: None)
  Receive Date: 20060203
  Receipt Date: 20060127
  Transmission Date: 20060701
  Serious: Yes (Life-Threatening, Hospitalization)
  Sender: FDA-Public Use
  Company Number: US-AVENTIS-200610831GDDC

PATIENT
  Age: 72 Year
  Sex: Male
  Weight: 62.28 kg

DRUGS (6)
  1. NOVOLOG MIX 70/30 [Suspect]
     Indication: DIABETES MELLITUS
     Dosage: DOSE: 17 UNITS EVERY MORNING WITH MEAL
     Route: 058
     Dates: start: 20050711
  2. NOVOLOG MIX 70/30 [Suspect]
     Dosage: DOSE: 8 UNITS EVERY NIGHT WITH MEAL
     Route: 058
     Dates: start: 20050711
  3. GLIMEPIRIDE [Suspect]
     Indication: DIABETES MELLITUS
     Dates: start: 20030411
  4. ASPIRIN [Concomitant]
  5. LISINOPRIL [Concomitant]
  6. SAW PALMETTO [Concomitant]

REACTIONS (4)
  - BLOOD GLUCOSE INCREASED [None]
  - GLYCOSYLATED HAEMOGLOBIN INCREASED [None]
  - HYPOGLYCAEMIA [None]
  - INTRACRANIAL INJURY [None]
